FAERS Safety Report 12420375 (Version 9)
Quarter: 2020Q3

REPORT INFORMATION
  Report Type: Report from Study
  Country: FR (occurrence: FR)
  Receive Date: 20160531
  Receipt Date: 20160922
  Transmission Date: 20201104
  Serious: Yes (Death, Life-Threatening, Hospitalization)
  Sender: FDA-Public Use
  Company Number: FR-JNJFOC-20160524518

PATIENT
  Age: 72 Year
  Sex: Male
  Weight: 80 kg

DRUGS (14)
  1. LENALIDOMIDE [Suspect]
     Active Substance: LENALIDOMIDE
     Indication: PLASMA CELL MYELOMA
     Route: 065
     Dates: start: 20140319
  2. TOPALGIC LP [Concomitant]
     Active Substance: TRAMADOL HYDROCHLORIDE
  3. ZELITREX [Concomitant]
     Active Substance: VALACYCLOVIR HYDROCHLORIDE
  4. LENALIDOMIDE [Suspect]
     Active Substance: LENALIDOMIDE
     Indication: PLASMA CELL MYELOMA
     Route: 065
     Dates: start: 20140617, end: 20160516
  5. COVERSYL [Concomitant]
     Active Substance: PERINDOPRIL
  6. LYTOS [Concomitant]
     Active Substance: CLODRONATE DISODIUM
  7. XALATAN [Concomitant]
     Active Substance: LATANOPROST
  8. DARATUMUMAB [Suspect]
     Active Substance: DARATUMUMAB
     Route: 042
  9. DARATUMUMAB [Suspect]
     Active Substance: DARATUMUMAB
     Indication: PLASMA CELL MYELOMA
     Dosage: TOTAL 38 DOSES
     Route: 042
     Dates: start: 20140318, end: 20160426
  10. NEXIUM [Concomitant]
     Active Substance: ESOMEPRAZOLE MAGNESIUM
  11. CONTRAMAL [Concomitant]
     Active Substance: TRAMADOL HYDROCHLORIDE
  12. DEXAMETHASONE. [Suspect]
     Active Substance: DEXAMETHASONE
     Indication: PLASMA CELL MYELOMA
     Route: 065
     Dates: start: 20140318, end: 20160517
  13. ELISOR [Concomitant]
     Active Substance: PRAVASTATIN SODIUM
  14. XATRAL [Concomitant]
     Active Substance: ALFUZOSIN

REACTIONS (3)
  - Endocarditis [Not Recovered/Not Resolved]
  - Bacteraemia [Fatal]
  - Septic shock [Fatal]

NARRATIVE: CASE EVENT DATE: 20160521
